FAERS Safety Report 23404061 (Version 1)
Quarter: 2024Q1

REPORT INFORMATION
  Report Type: Spontaneous
  Country: GB (occurrence: GB)
  Receive Date: 20240116
  Receipt Date: 20240116
  Transmission Date: 20240410
  Serious: Yes (Other)
  Sender: FDA-Public Use
  Company Number: None

PATIENT
  Age: 79 Year
  Weight: 84 kg

DRUGS (3)
  1. RANOLAZINE [Suspect]
     Active Substance: RANOLAZINE
     Route: 065
     Dates: start: 20231115, end: 20231227
  2. FLUOROURACIL [Concomitant]
     Active Substance: FLUOROURACIL
     Dosage: APPLY THINLY
     Dates: start: 20231123
  3. NICORANDIL [Concomitant]
     Active Substance: NICORANDIL
     Dates: start: 20231227

REACTIONS (3)
  - Suprapubic pain [Recovered/Resolved]
  - Abdominal pain [Recovered/Resolved]
  - Chromaturia [Recovered/Resolved]
